FAERS Safety Report 25198774 (Version 1)
Quarter: 2025Q2

REPORT INFORMATION
  Report Type: Spontaneous
  Country: US (occurrence: US)
  Receive Date: 20250415
  Receipt Date: 20250415
  Transmission Date: 20250717
  Serious: No
  Sender: CHIESI
  Company Number: US-CHIESI-2024CHF08326

PATIENT
  Sex: Male
  Weight: 23.37 kg

DRUGS (2)
  1. FILSUVEZ [Suspect]
     Active Substance: BIRCH TRITERPENES
     Indication: Epidermolysis bullosa
     Route: 061
     Dates: start: 20240430
  2. FILSUVEZ [Suspect]
     Active Substance: BIRCH TRITERPENES
     Route: 061

REACTIONS (1)
  - Wound [Not Recovered/Not Resolved]
